FAERS Safety Report 5103784-2 (Version None)
Quarter: 2006Q3

REPORT INFORMATION
  Report Type: 
  Country: None (occurrence: None)
  Receive Date: 20060913
  Receipt Date: 20060816
  Transmission Date: 20061208
  Serious: Yes (Death, Hospitalization)
  Sender: FDA-Public Use
  Company Number: PE-BRISTOL-MYERS SQUIBB COMPANY-13477492

PATIENT
  Age: 52 Year
  Sex: Male

DRUGS (5)
  1. CISPLATIN [Suspect]
     Indication: GASTRIC CANCER
     Route: 041
     Dates: start: 20060605, end: 20060605
  2. TS-1 [Suspect]
     Indication: GASTRIC CANCER
     Route: 048
     Dates: start: 20060605, end: 20060626
  3. GRAVOL TAB [Concomitant]
     Indication: VOMITING
     Route: 042
     Dates: start: 20060626, end: 20060626
  4. KETOROLAC TROMETHAMINE [Concomitant]
     Indication: PAIN
     Route: 048
     Dates: start: 20060619
  5. DEXAMETHASONE TAB [Concomitant]
     Indication: VOMITING
     Route: 048
     Dates: start: 20060626

REACTIONS (3)
  - DEHYDRATION [None]
  - MALIGNANT NEOPLASM PROGRESSION [None]
  - RENAL FAILURE ACUTE [None]
